FAERS Safety Report 12285417 (Version 2)
Quarter: 2017Q2

REPORT INFORMATION
  Report Type: Spontaneous
  Country: US (occurrence: US)
  Receive Date: 20160420
  Receipt Date: 20170501
  Transmission Date: 20170830
  Serious: Yes (Disabling)
  Sender: FDA-Public Use
  Company Number: US-ROCHE-1712475

PATIENT
  Age: 5 Year
  Sex: Female

DRUGS (1)
  1. VISMODEGIB [Suspect]
     Active Substance: VISMODEGIB
     Indication: MEDULLOBLASTOMA
     Route: 065

REACTIONS (4)
  - Epiphyses premature fusion [Unknown]
  - Body height below normal [Unknown]
  - Osteosclerosis [Unknown]
  - Bone development abnormal [Unknown]
